FAERS Safety Report 6982575-1 (Version None)
Quarter: 2010Q3

REPORT INFORMATION
  Report Type: 
  Country: None (occurrence: None)
  Receive Date: 20100914
  Receipt Date: 20100224
  Transmission Date: 20110219
  Serious: Yes (Other)
  Sender: FDA-Public Use
  Company Number: US-PFIZER INC-2010026685

PATIENT
  Sex: Female
  Weight: 95.238 kg

DRUGS (3)
  1. LYRICA [Suspect]
     Indication: BIPOLAR DISORDER
     Dosage: 125 MG, 1X/DAY
     Route: 048
     Dates: start: 20080101
  2. SEROQUEL [Concomitant]
     Indication: BIPOLAR DISORDER
     Dosage: UNK
  3. TRILEPTAL [Concomitant]
     Dosage: UNK

REACTIONS (2)
  - SWELLING FACE [None]
  - WEIGHT INCREASED [None]
